FAERS Safety Report 11413481 (Version 1)
Quarter: 2015Q3

REPORT INFORMATION
  Report Type: Spontaneous
  Country: US (occurrence: US)
  Receive Date: 20150821
  Receipt Date: 20150821
  Transmission Date: 20151125
  Serious: No
  Sender: FDA-Public Use
  Company Number: US-ELI_LILLY_AND_COMPANY-US201101000984

PATIENT
  Age: 86 Year
  Sex: Female

DRUGS (3)
  1. HUMULIN N [Suspect]
     Active Substance: INSULIN HUMAN
     Indication: BLOOD GLUCOSE INCREASED
     Dosage: 5 U, UNK
  2. HUMULIN N [Suspect]
     Active Substance: INSULIN HUMAN
     Indication: BLOOD GLUCOSE INCREASED
     Dosage: 5 U, UNK
  3. HUMULIN N [Suspect]
     Active Substance: INSULIN HUMAN
     Dosage: 5 U, UNK

REACTIONS (13)
  - Headache [Unknown]
  - Visual acuity reduced [Unknown]
  - Fear [Unknown]
  - Underdose [Unknown]
  - Head deformity [Unknown]
  - Arthritis [Unknown]
  - Skin disorder [Unknown]
  - Fatigue [Unknown]
  - Peripheral swelling [Unknown]
  - Fall [Unknown]
  - Medication error [Unknown]
  - Pain in extremity [Unknown]
  - Anxiety [Unknown]

NARRATIVE: CASE EVENT DATE: 201012
